FAERS Safety Report 8062083-X (Version None)
Quarter: 2012Q1

REPORT INFORMATION
  Report Type: 
  Country: None (occurrence: None)
  Receive Date: 20120123
  Receipt Date: 20120111
  Transmission Date: 20120608
  Serious: Yes (Death, Life-Threatening, Hospitalization, Other)
  Sender: FDA-Public Use
  Company Number: JP-GENZYME-THYM-1003078

PATIENT

DRUGS (44)
  1. METHYLPREDNISOLONE SODIUM SUCCINATE [Concomitant]
     Indication: SUPPORTIVE CARE
     Dosage: UNK
     Route: 065
     Dates: start: 20090531, end: 20090601
  2. HYDROCORTISONE 21-(SODIUM SUCCINATE) [Concomitant]
     Indication: PREMEDICATION
     Dosage: UNK
     Route: 065
     Dates: start: 20090603, end: 20090603
  3. VORICONAZOLE [Concomitant]
     Indication: SYSTEMIC MYCOSIS
     Dosage: UNK
     Route: 065
     Dates: end: 20090805
  4. DOPAMINE HCL [Concomitant]
     Indication: SUPPORTIVE CARE
     Dosage: UNK
     Route: 065
     Dates: start: 20090922, end: 20091013
  5. LEVOFLOXACIN [Concomitant]
     Indication: SUPPORTIVE CARE
     Dosage: UNK
     Dates: start: 20090526, end: 20090626
  6. DOPAMINE HCL [Concomitant]
     Dosage: UNK
     Route: 066
     Dates: start: 20091231, end: 20100106
  7. FILGRASTIM [Concomitant]
     Indication: SUPPORTIVE CARE
     Dosage: UNK
     Route: 065
     Dates: start: 20100101, end: 20100101
  8. HUMANSERUM [Concomitant]
     Indication: SUPPORTIVE CARE
     Dosage: UNK
     Route: 065
     Dates: start: 20090603, end: 20090603
  9. FLURBIPROFEN [Concomitant]
     Indication: SUPPORTIVE CARE
     Dosage: UNK
     Route: 065
     Dates: start: 20090622, end: 20101230
  10. SOYABEAN OIL [Concomitant]
     Indication: SUPPORTIVE CARE
     Dosage: UNK
     Route: 065
     Dates: start: 20091113, end: 20091120
  11. THYMOGLOBULIN [Suspect]
     Indication: BONE MARROW CONDITIONING REGIMEN
     Dosage: 112.5 MG, QD
     Route: 065
     Dates: start: 20090529, end: 20090601
  12. CEFAZOLIN SODIUM [Concomitant]
     Indication: INFECTION PROPHYLAXIS
     Dosage: UNK
     Route: 065
     Dates: start: 20090520, end: 20090529
  13. HUMANSERUM [Concomitant]
     Dosage: UNK
     Route: 065
     Dates: start: 20090812, end: 20090812
  14. MIDAZOLAM [Concomitant]
     Indication: SUPPORTIVE CARE
     Dosage: UNK
     Route: 066
     Dates: start: 20091217, end: 20120106
  15. FREEZED DRIED POLYETHYLENE GLYCOL TREATED HUMAN NORMAL IMMUNOGLOBULIN [Concomitant]
     Indication: INFECTION PROPHYLAXIS
     Dosage: UNK
     Route: 065
     Dates: start: 20090528, end: 20091230
  16. VORICONAZOLE [Concomitant]
     Dosage: UNK
     Route: 065
     Dates: start: 20090822, end: 20090922
  17. VORICONAZOLE [Concomitant]
     Dosage: UNK
     Route: 066
     Dates: start: 20091216, end: 20091218
  18. HUMAN PLASMA PROTEIN FRACTION [Concomitant]
     Indication: SUPPORTIVE CARE
     Dosage: UNK
     Route: 065
     Dates: start: 20090921, end: 20091227
  19. FAMOTIDINE [Concomitant]
     Dosage: UNK
     Route: 065
     Dates: start: 20090702, end: 20090924
  20. CARBAZOCHROME SODIUM SULFONATE [Concomitant]
     Indication: SUPPORTIVE CARE
     Dosage: UNK
     Route: 065
     Dates: start: 20090930, end: 20091231
  21. URSODESOXYCHOLIC ACID [Concomitant]
     Indication: PROPHYLAXIS
     Dosage: UNK
     Route: 065
     Dates: start: 20090526, end: 20090701
  22. ALLOPURINOL [Concomitant]
     Dosage: UNK
     Route: 065
     Dates: start: 20090808, end: 20090815
  23. FENTANYL CITRATE [Concomitant]
     Indication: SUPPORTIVE CARE
     Dosage: UNK
     Route: 065
     Dates: start: 20091218, end: 20100106
  24. INSULIN HUMAN [Concomitant]
     Indication: SUPPORTIVE CARE
     Dosage: UNK
     Route: 065
     Dates: start: 20100101, end: 20100106
  25. MELPHALAN [Concomitant]
     Indication: PREMEDICATION
     Dosage: UNK
     Route: 065
     Dates: start: 20090531, end: 20090601
  26. FAMOTIDINE [Concomitant]
     Indication: SUPPORTIVE CARE
     Dosage: UNK
     Route: 065
     Dates: start: 20090923, end: 20090924
  27. EPINASTINE HYDROCHLORIDE [Concomitant]
     Indication: SUPPORTIVE CARE
     Dosage: UNK
     Route: 065
     Dates: start: 20090629, end: 20090731
  28. DALTEPARIN SODIUM [Concomitant]
     Indication: PROPHYLAXIS
     Dosage: UNK
     Route: 065
     Dates: start: 20090525, end: 20090701
  29. FLUDARABINE PHOSPHATE [Concomitant]
     Indication: PREMEDICATION
     Dosage: UNK
     Route: 065
     Dates: start: 20090526, end: 20090530
  30. TACROLIMUS [Concomitant]
     Indication: PROPHYLAXIS AGAINST GRAFT VERSUS HOST DISEASE
     Dosage: UNK
     Route: 065
     Dates: start: 20090602, end: 20091218
  31. METHOTREXATE [Concomitant]
     Indication: PROPHYLAXIS AGAINST GRAFT VERSUS HOST DISEASE
     Dosage: UNK
     Route: 065
     Dates: start: 20090604, end: 20090614
  32. HYDROCORTISONE 21-(SODIUM SUCCINATE) [Concomitant]
     Indication: ANAPHYLAXIS PROPHYLAXIS
  33. SCOPOLAMINE [Concomitant]
     Indication: SUPPORTIVE CARE
     Dosage: UNK
     Route: 065
     Dates: start: 20090702, end: 20101218
  34. LANSOPRAZOLE [Concomitant]
     Dosage: UNK
     Route: 065
     Dates: start: 20090922, end: 20090923
  35. ROCURONIUM BROMIDE [Concomitant]
     Indication: SUPPORTIVE CARE
     Dosage: UNK
     Route: 065
     Dates: start: 20100101, end: 20100101
  36. FUROSEMIDE [Concomitant]
     Indication: SUPPORTIVE CARE
     Dosage: UNK
     Route: 065
     Dates: start: 20090621, end: 20100101
  37. VORICONAZOLE [Concomitant]
     Dosage: UNK
     Route: 065
     Dates: start: 20090805, end: 20100106
  38. OMEPRAZOLE SODIUM [Concomitant]
     Indication: SUPPORTIVE CARE
     Dosage: UNK
     Route: 065
     Dates: start: 20090923, end: 20100106
  39. SULFAMETHOXAZOLE W [Concomitant]
     Indication: ANTIFUNGAL PROPHYLAXIS
     Dosage: UNK
     Route: 065
     Dates: start: 20090721, end: 20090924
  40. PENTAZOCINE LACTATE [Concomitant]
     Indication: SUPPORTIVE CARE
     Dosage: UNK
     Route: 065
     Dates: start: 20091001, end: 20091218
  41. ALLOPURINOL [Concomitant]
     Indication: PROPHYLAXIS
     Dosage: UNK
     Route: 065
     Dates: start: 20090525, end: 20090602
  42. ACYCLOVIR [Concomitant]
     Indication: PROPHYLAXIS
     Dosage: UNK
     Route: 065
     Dates: start: 20090527, end: 20090708
  43. LANSOPRAZOLE [Concomitant]
     Indication: SUPPORTIVE CARE
     Dosage: UNK
     Route: 065
     Dates: start: 20090702, end: 20090908
  44. DEXAMETHASONE [Concomitant]
     Indication: SUPPORTIVE CARE
     Dosage: UNK
     Route: 065
     Dates: start: 20100101, end: 20100101

REACTIONS (16)
  - PYREXIA [None]
  - FEBRILE NEUTROPENIA [None]
  - SEPSIS [None]
  - POST TRANSPLANT LYMPHOPROLIFERATIVE DISORDER [None]
  - ILEUS [None]
  - CYTOMEGALOVIRUS ENTEROCOLITIS [None]
  - SYSTEMIC MYCOSIS [None]
  - DISSEMINATED INTRAVASCULAR COAGULATION [None]
  - ACUTE GRAFT VERSUS HOST DISEASE IN SKIN [None]
  - INFECTIOUS PERITONITIS [None]
  - ACUTE GRAFT VERSUS HOST DISEASE [None]
  - GASTROINTESTINAL NECROSIS [None]
  - DUODENITIS HAEMORRHAGIC [None]
  - CHOLESTASIS [None]
  - GRANULOMA [None]
  - PANCREATITIS [None]
